FAERS Safety Report 15628847 (Version 1)
Quarter: 2018Q4

REPORT INFORMATION
  Report Type: Spontaneous
  Country: JP (occurrence: JP)
  Receive Date: 20181116
  Receipt Date: 20181116
  Transmission Date: 20190205
  Serious: Yes (Other)
  Sender: FDA-Public Use
  Company Number: JP-PFIZER INC-2018466538

PATIENT
  Age: 8 Day
  Sex: Female
  Weight: .66 kg

DRUGS (15)
  1. SOLU-CORTEF [Suspect]
     Active Substance: HYDROCORTISONE SODIUM SUCCINATE
     Indication: LUNG DISORDER
     Dosage: 0.75 MG, 2X/DAY
     Route: 042
     Dates: start: 20180825, end: 20180828
  2. HEPARIN [Concomitant]
     Active Substance: HEPARIN SODIUM
     Dosage: 0.1 ML, UNK
  3. HEPARIN [Concomitant]
     Active Substance: HEPARIN SODIUM
     Dosage: 0.05 ML, UNK
  4. GLUCOSE [Concomitant]
     Active Substance: DEXTROSE
     Dosage: 20 ML, UNK
  5. SODIUM CHLORIDE. [Concomitant]
     Active Substance: SODIUM CHLORIDE
     Dosage: 4 ML, UNK
  6. VITAJECT [CYANOCOBALAMIN;PYRIDOXINE HYDROCHLORIDE;THIAMINE HYDROCHLORI [Concomitant]
     Dosage: UNK
  7. CALCICOL [Concomitant]
     Active Substance: CALCIUM GLUCONATE
     Dosage: 10 ML, UNK
  8. SODIUM PHOSPHATE [SODIUM PHOSPHATE DIBASIC] [Concomitant]
     Dosage: UNK
  9. INTRALIPOS [Concomitant]
     Active Substance: SOYBEAN OIL
     Dosage: UNK
  10. GLUCOSE [Concomitant]
     Active Substance: DEXTROSE
     Dosage: 40 ML, UNK
  11. RESPIA [Concomitant]
     Active Substance: CAFFEINE
     Dosage: 3.5 MG, SINGLE
  12. KCL [Concomitant]
     Active Substance: POTASSIUM CHLORIDE
     Dosage: UNK
  13. GLUCOSE [Concomitant]
     Active Substance: DEXTROSE
     Dosage: 15 ML, UNK
  14. PLEAMIN P [Concomitant]
     Dosage: UNK
  15. MEDLENIK [Concomitant]
     Active Substance: CUPRIC SULFATE\FERRIC CHLORIDE\MANGANESE CHLORIDE\POTASSIUM IODIDE\ZINC SULFATE
     Dosage: UNK

REACTIONS (1)
  - Blood glucose increased [Recovered/Resolved]

NARRATIVE: CASE EVENT DATE: 20180825
